FAERS Safety Report 12695490 (Version 1)
Quarter: 2016Q3

REPORT INFORMATION
  Report Type: Spontaneous
  Country: GB (occurrence: GB)
  Receive Date: 20160829
  Receipt Date: 20160829
  Transmission Date: 20161109
  Serious: Yes (Hospitalization, Other)
  Sender: FDA-Public Use
  Company Number: GB-JNJFOC-20160715756

PATIENT
  Age: 70 Year
  Sex: Male
  Weight: 92 kg

DRUGS (11)
  1. SILDENAFIL. [Concomitant]
     Active Substance: SILDENAFIL
     Route: 065
     Dates: start: 20160301, end: 20160602
  2. PREDNISOLONE. [Concomitant]
     Active Substance: PREDNISOLONE
     Indication: POLYMYALGIA RHEUMATICA
     Route: 048
     Dates: start: 20160301
  3. BISOPROLOL [Concomitant]
     Active Substance: BISOPROLOL
     Indication: ATRIAL FIBRILLATION
     Route: 048
     Dates: start: 20160301
  4. HYDROXYCARBAMIDE [Concomitant]
     Active Substance: HYDROXYUREA
     Route: 065
     Dates: end: 2015
  5. XARELTO [Suspect]
     Active Substance: RIVAROXABAN
     Indication: CEREBROVASCULAR ACCIDENT PROPHYLAXIS
     Route: 048
     Dates: start: 20160415
  6. PIPOBROMAN [Suspect]
     Active Substance: PIPOBROMAN
     Indication: POLYCYTHAEMIA VERA
     Route: 065
     Dates: start: 201202
  7. ASPIRIN. [Concomitant]
     Active Substance: ASPIRIN
     Dosage: CUMULATIVE DOSE TO FIRST REACTION: 46 DOSAGE FORMS
     Route: 065
     Dates: start: 20160301, end: 20160415
  8. SIMVASTATIN. [Concomitant]
     Active Substance: SIMVASTATIN
     Dosage: CUMULATIVE DOSE TO FIRST REACTION: 74 DOSAGE FORMS
     Route: 065
     Dates: start: 20160301, end: 20160513
  9. OMEPRAZOLE. [Concomitant]
     Active Substance: OMEPRAZOLE
     Indication: POLYMYALGIA RHEUMATICA
     Route: 065
     Dates: start: 20160301
  10. FLECAINIDE ACETATE. [Concomitant]
     Active Substance: FLECAINIDE ACETATE
     Indication: ATRIAL FIBRILLATION
     Route: 048
     Dates: start: 20160301
  11. XARELTO [Suspect]
     Active Substance: RIVAROXABAN
     Indication: ATRIAL FIBRILLATION
     Route: 048
     Dates: start: 20160415

REACTIONS (11)
  - Hepatitis [Recovering/Resolving]
  - Anaemia [Unknown]
  - Jaundice [Unknown]
  - Malaise [Not Recovered/Not Resolved]
  - Chromaturia [Unknown]
  - Pancytopenia [Unknown]
  - Liver function test abnormal [Recovering/Resolving]
  - Weight decreased [Unknown]
  - Fatigue [Not Recovered/Not Resolved]
  - Neutropenia [Unknown]
  - Thrombocytopenia [Unknown]

NARRATIVE: CASE EVENT DATE: 201606
